FAERS Safety Report 9657302 (Version 1)
Quarter: 2013Q4

REPORT INFORMATION
  Report Type: Spontaneous
  Country: HR (occurrence: HR)
  Receive Date: 20131030
  Receipt Date: 20131030
  Transmission Date: 20140711
  Serious: Yes (Death)
  Sender: FDA-Public Use
  Company Number: HR-BAYER-2013-130007

PATIENT
  Age: 63 Year
  Sex: Female

DRUGS (4)
  1. CLARITHROMYCIN [Suspect]
     Indication: PYREXIA
     Dosage: UNK
  2. CLARITHROMYCIN [Suspect]
     Indication: CHEST PAIN
  3. CIPROFLOXACIN [Suspect]
  4. VANCOMYCIN [Concomitant]

REACTIONS (4)
  - Myocardiac abscess [Fatal]
  - Bacterial pericarditis [Fatal]
  - Streptococcal sepsis [Fatal]
  - Multi-organ failure [Fatal]
